FAERS Safety Report 15239839 (Version 1)
Quarter: 2018Q3

REPORT INFORMATION
  Report Type: Spontaneous
  Country: US (occurrence: US)
  Receive Date: 20180710
  Receipt Date: 20180710
  Transmission Date: 20181010
  Serious: Yes (Other)
  Sender: FDA-Public Use
  Company Number: None

PATIENT
  Age: 28 Year
  Sex: Female
  Weight: 51.75 kg

DRUGS (14)
  1. DRONABINOL. [Concomitant]
     Active Substance: DRONABINOL
  2. ONDANSETRON [Concomitant]
     Active Substance: ONDANSETRON
  3. LETROZOLE. [Concomitant]
     Active Substance: LETROZOLE
  4. OXYCODONE AND ACETAMINOPHEN [Concomitant]
     Active Substance: ACETAMINOPHEN\OXYCODONE HYDROCHLORIDE
  5. SENNOKOT [Concomitant]
  6. IBRANCE [Suspect]
     Active Substance: PALBOCICLIB
     Indication: BREAST CANCER
     Route: 048
     Dates: start: 20180425
  7. FAMOTIDINE. [Concomitant]
     Active Substance: FAMOTIDINE
  8. MIRALAX [Concomitant]
     Active Substance: POLYETHYLENE GLYCOL 3350
  9. ALBUTEROL. [Concomitant]
     Active Substance: ALBUTEROL
  10. TYLENOL [Concomitant]
     Active Substance: ACETAMINOPHEN
  11. FLONASE [Concomitant]
     Active Substance: FLUTICASONE PROPIONATE
  12. MIRTAZAPINE. [Concomitant]
     Active Substance: MIRTAZAPINE
  13. IPRATROPIUM [Concomitant]
     Active Substance: IPRATROPIUM
  14. VITAMIN D [Concomitant]
     Active Substance: CHOLECALCIFEROL

REACTIONS (2)
  - Nausea [None]
  - Headache [None]
